FAERS Safety Report 18159698 (Version 3)
Quarter: 2020Q4

REPORT INFORMATION
  Report Type: Report from Study
  Country: GB (occurrence: GB)
  Receive Date: 20200818
  Receipt Date: 20201006
  Transmission Date: 20210113
  Serious: Yes (Hospitalization, Other)
  Sender: FDA-Public Use
  Company Number: GB-SAMSUNG BIOEPIS-SB-2018-08824

PATIENT
  Age: 90 Year
  Sex: Female

DRUGS (2)
  1. MORPHINE [Suspect]
     Active Substance: MORPHINE
     Indication: PRODUCT USED FOR UNKNOWN INDICATION
     Dosage: UNKNOWN
     Route: 065
  2. BENEPALI [Suspect]
     Active Substance: ETANERCEPT
     Indication: RHEUMATOID ARTHRITIS
     Route: 058
     Dates: start: 20170126

REACTIONS (13)
  - Diverticulitis [Unknown]
  - Decubitus ulcer [Unknown]
  - Myocardial infarction [Unknown]
  - Sepsis [Unknown]
  - Pain [Unknown]
  - Urinary tract infection [Unknown]
  - Delirium [Unknown]
  - Infection [Unknown]
  - Cauda equina syndrome [Unknown]
  - Monoplegia [Unknown]
  - Pain in extremity [Unknown]
  - Somnolence [Unknown]
  - Drug ineffective [Unknown]

NARRATIVE: CASE EVENT DATE: 2019
